FAERS Safety Report 5058947-1 (Version None)
Quarter: 2006Q3

REPORT INFORMATION
  Report Type: 
  Country: None (occurrence: None)
  Receive Date: 20060721
  Receipt Date: 20060606
  Transmission Date: 20061208
  Serious: Yes (Other)
  Sender: FDA-Public Use
  Company Number: PHEH2006US07374

PATIENT
  Age: 49 Year
  Sex: Female

DRUGS (6)
  1. ORAL CONTRACEPTIVE NOS [Concomitant]
  2. SYNTHROID [Concomitant]
  3. CLARITIN [Concomitant]
  4. ZOCOR [Concomitant]
  5. ACIPHEX [Concomitant]
  6. ZELNORM [Suspect]
     Indication: IRRITABLE BOWEL SYNDROME
     Dosage: 6 MG, QD
     Route: 048
     Dates: start: 20060201

REACTIONS (4)
  - ABDOMINAL PAIN UPPER [None]
  - CHOLECYSTECTOMY [None]
  - EJECTION FRACTION DECREASED [None]
  - GALLBLADDER DISORDER [None]
